FAERS Safety Report 8318764-3 (Version None)
Quarter: 2012Q2

REPORT INFORMATION
  Report Type: 
  Country: None (occurrence: None)
  Receive Date: 20120427
  Receipt Date: 20120418
  Transmission Date: 20120825
  Serious: Yes (Hospitalization)
  Sender: FDA-Public Use
  Company Number: AU-ASTRAZENECA-2012SE08659

PATIENT
  Age: 66 Year
  Sex: Male
  Weight: 85 kg

DRUGS (9)
  1. ROSUVASTATIN [Concomitant]
     Dosage: 5 MG ALT DIE
     Route: 048
  2. ASPIRIN [Concomitant]
     Route: 048
  3. EZETEMIBE [Concomitant]
     Route: 048
  4. MAGNESIUM ASPARTATE [Concomitant]
     Route: 048
  5. NICORANDIL [Concomitant]
     Route: 048
  6. IRBESARTAN HCT [Concomitant]
     Dosage: 300/12.5 EVERY MORNING
     Route: 048
  7. PRAZOSIN HCL [Concomitant]
     Route: 048
  8. METFORMIN HCL [Concomitant]
     Route: 048
  9. TICAGRELOR [Suspect]
     Indication: ANTICOAGULANT THERAPY
     Route: 048
     Dates: start: 20111025, end: 20120124

REACTIONS (2)
  - CHEST PAIN [None]
  - DYSPNOEA [None]
